FAERS Safety Report 7957737-7 (Version None)
Quarter: 2011Q4

REPORT INFORMATION
  Report Type: 
  Country: None (occurrence: None)
  Receive Date: 20111205
  Receipt Date: 20111130
  Transmission Date: 20120403
  Serious: Yes (Death, Other)
  Sender: FDA-Public Use
  Company Number: PHHY2011JP105200

PATIENT
  Age: 53 Year
  Sex: Female

DRUGS (1)
  1. GLEEVEC [Suspect]
     Indication: GASTROINTESTINAL STROMAL TUMOUR

REACTIONS (8)
  - NEOPLASM MALIGNANT [None]
  - ABDOMINAL PAIN [None]
  - DIARRHOEA [None]
  - DEATH [None]
  - ABDOMINAL DISCOMFORT [None]
  - CONSTIPATION [None]
  - NEOPLASM PROGRESSION [None]
  - INTESTINAL OBSTRUCTION [None]
